FAERS Safety Report 24027519 (Version 1)
Quarter: 2024Q2

REPORT INFORMATION
  Report Type: Spontaneous
  Country: JP (occurrence: JP)
  Receive Date: 20240628
  Receipt Date: 20240628
  Transmission Date: 20240716
  Serious: Yes (Hospitalization, Other)
  Sender: FDA-Public Use
  Company Number: JP-GSKNCCC-Case-02007658_AE-84696

PATIENT

DRUGS (4)
  1. LAMICTAL [Suspect]
     Active Substance: LAMOTRIGINE
     Indication: Bipolar disorder
     Dosage: 10 MG, QD
     Dates: start: 20240517
  2. LAMICTAL [Suspect]
     Active Substance: LAMOTRIGINE
     Indication: Bipolar disorder
     Dosage: 25 MG, QD
     Dates: start: 20240524
  3. LAMICTAL [Suspect]
     Active Substance: LAMOTRIGINE
     Dosage: 50 MG, 1D
     Dates: start: 20240531
  4. LEXAPRO [Concomitant]
     Active Substance: ESCITALOPRAM OXALATE
     Dosage: 10 MG
     Dates: start: 20240531

REACTIONS (11)
  - Rash [Recovered/Resolved]
  - Urticaria [Recovered/Resolved]
  - Skin disorder [Recovered/Resolved]
  - Stomatitis [Recovered/Resolved]
  - Hyperthermia [Recovered/Resolved]
  - Lymphadenopathy [Recovered/Resolved]
  - Hospitalisation [Unknown]
  - Histiocytic necrotising lymphadenitis [Unknown]
  - Prescribed underdose [Unknown]
  - Product use issue [Unknown]
  - Off label use [Unknown]

NARRATIVE: CASE EVENT DATE: 20240601
